FAERS Safety Report 6626920-5 (Version None)
Quarter: 2010Q1

REPORT INFORMATION
  Report Type: 
  Country: None (occurrence: None)
  Receive Date: 20100311
  Receipt Date: 20100215
  Transmission Date: 20100710
  Serious: No
  Sender: FDA-Public Use
  Company Number: US-BAYER-200944042NA

PATIENT
  Age: 25 Year
  Sex: Female
  Weight: 82 kg

DRUGS (3)
  1. MIRENA [Suspect]
     Indication: CONTRACEPTION
     Dosage: FREQUENCY CONTINUOUS
     Route: 015
     Dates: start: 20091223
  2. MIRENA [Suspect]
     Dosage: FREQUENCY CONTINUOUS
     Route: 015
     Dates: start: 20080721, end: 20091223
  3. ADIPEX [Concomitant]
     Indication: WEIGHT DECREASED
     Route: 065

REACTIONS (5)
  - ABDOMINAL PAIN [None]
  - DEVICE EXPULSION [None]
  - NAUSEA [None]
  - VAGINAL HAEMORRHAGE [None]
  - VOMITING [None]
